FAERS Safety Report 13333286 (Version 1)
Quarter: 2017Q1

REPORT INFORMATION
  Report Type: Spontaneous
  Country: US (occurrence: US)
  Receive Date: 20170314
  Receipt Date: 20170314
  Transmission Date: 20170428
  Serious: No
  Sender: FDA-Public Use
  Company Number: US-PFIZER INC-2017106525

PATIENT
  Age: 44 Year
  Sex: Female
  Weight: 50.8 kg

DRUGS (1)
  1. ADVIL [Suspect]
     Active Substance: IBUPROFEN
     Indication: HEADACHE
     Dosage: 200MG ONE TABLET BY MOUTH TIMES ONE
     Route: 048
     Dates: start: 20170308, end: 20170308

REACTIONS (3)
  - Nausea [Recovered/Resolved]
  - Dyspepsia [Recovered/Resolved]
  - Product coating issue [Unknown]

NARRATIVE: CASE EVENT DATE: 20170308
